FAERS Safety Report 16727628 (Version 2)
Quarter: 2019Q3

REPORT INFORMATION
  Report Type: Report from Study
  Country: AU (occurrence: AU)
  Receive Date: 20190822
  Receipt Date: 20190920
  Transmission Date: 20191005
  Serious: Yes (Other)
  Sender: FDA-Public Use
  Company Number: AU-ROCHE-2374835

PATIENT
  Age: 83 Year
  Sex: Female
  Weight: 70 kg

DRUGS (10)
  1. OMEGA 3 [DOCOSAHEXAENOIC ACID;EICOSAPENTAENOIC ACID] [Concomitant]
     Indication: HYPERLIPIDAEMIA
  2. RITUXIMAB. [Suspect]
     Active Substance: RITUXIMAB
     Indication: NON-HODGKIN^S LYMPHOMA UNSPECIFIED HISTOLOGY INDOLENT
     Dosage: DATE OF MOST RECENT DOSE (500 ML, CONCENTRATION 1.3 MG/ML) OF RITUXIMAB PRIOR TO AE 20/NOV/2013
     Route: 041
     Dates: start: 20130613
  3. BENDAMUSTINE [Suspect]
     Active Substance: BENDAMUSTINE
     Indication: NON-HODGKIN^S LYMPHOMA UNSPECIFIED HISTOLOGY INDOLENT
     Dosage: DATE OF MOST RECENT DOSE (157 MG) OF BENDAMUSTINE PRIOR TO AE ONSET 20/NOV/2013.
     Route: 042
     Dates: start: 20130613
  4. METFORMIN [Concomitant]
     Active Substance: METFORMIN HYDROCHLORIDE
     Indication: TYPE 2 DIABETES MELLITUS
     Route: 065
  5. CRESTOR [Concomitant]
     Active Substance: ROSUVASTATIN CALCIUM
     Indication: HYPERLIPIDAEMIA
  6. SOMAC [Concomitant]
     Active Substance: PANTOPRAZOLE SODIUM
  7. OSTELIN [ERGOCALCIFEROL] [Concomitant]
  8. DIGOXIN. [Concomitant]
     Active Substance: DIGOXIN
     Indication: ATRIAL FIBRILLATION
  9. WARFARIN [Concomitant]
     Active Substance: WARFARIN
     Indication: ATRIAL FIBRILLATION
  10. LASIX [Concomitant]
     Active Substance: FUROSEMIDE
     Indication: HYPERTENSION

REACTIONS (2)
  - Bowen^s disease [Not Recovered/Not Resolved]
  - Actinic keratosis [Not Recovered/Not Resolved]

NARRATIVE: CASE EVENT DATE: 20190207
